FAERS Safety Report 4962054-3 (Version None)
Quarter: 2006Q2

REPORT INFORMATION
  Report Type: 
  Country: None (occurrence: None)
  Receive Date: 20060404
  Receipt Date: 20051031
  Transmission Date: 20061013
  Serious: Yes (Hospitalization, Disabling)
  Sender: FDA-Public Use
  Company Number: US-MERCK-0511USA00355

PATIENT
  Age: 47 Year
  Sex: Female
  Weight: 107 kg

DRUGS (18)
  1. VIOXX [Suspect]
     Indication: PAIN IN EXTREMITY
     Route: 048
     Dates: start: 20000101, end: 20030201
  2. VIOXX [Suspect]
     Route: 048
     Dates: start: 20000101, end: 20030201
  3. RELAFEN [Concomitant]
     Indication: PAIN
     Route: 065
     Dates: start: 20000101, end: 20050101
  4. INDOCIN [Concomitant]
     Indication: PAIN
     Route: 065
     Dates: start: 20000101, end: 20050101
  5. FLEXEN (NAPROXEN) [Concomitant]
     Indication: PAIN
     Route: 065
     Dates: start: 20000101, end: 20050101
  6. ASPIRIN [Concomitant]
     Indication: PAIN
     Route: 065
     Dates: start: 20000101, end: 20050101
  7. IBUPROFEN [Concomitant]
     Indication: PAIN
     Route: 065
     Dates: start: 20000101, end: 20050101
  8. ALEVE [Concomitant]
     Indication: PAIN
     Route: 065
     Dates: start: 20000101, end: 20050101
  9. MOTRIN [Concomitant]
     Indication: PAIN
     Route: 065
     Dates: start: 20000101, end: 20050101
  10. CATAPRES [Concomitant]
     Indication: HYPERTENSION
     Route: 065
  11. LIPITOR [Concomitant]
     Indication: BLOOD CHOLESTEROL INCREASED
     Route: 065
     Dates: start: 19740101
  12. ZESTRIL [Concomitant]
     Indication: HYPERTENSION
     Route: 065
     Dates: start: 20000101
  13. PROCARDIA [Concomitant]
     Indication: HYPERTENSION
     Route: 065
     Dates: start: 19990101, end: 20030101
  14. LOZOL [Concomitant]
     Indication: OEDEMA
     Route: 065
     Dates: start: 19800101, end: 20020101
  15. LOZOL [Concomitant]
     Indication: HYPERTENSION
     Route: 065
     Dates: start: 19800101, end: 20020101
  16. LASIX [Concomitant]
     Indication: OEDEMA
     Route: 065
     Dates: start: 19800101, end: 20020101
  17. LASIX [Concomitant]
     Indication: HYPERTENSION
     Route: 065
     Dates: start: 19800101, end: 20020101
  18. DIABETA [Concomitant]
     Indication: DIABETES MELLITUS
     Route: 065
     Dates: start: 19740101

REACTIONS (7)
  - ASTHENIA [None]
  - CHEST PAIN [None]
  - DYSPNOEA [None]
  - GASTRIC DISORDER [None]
  - HEMIPARESIS [None]
  - MYOCARDIAL INFARCTION [None]
  - OVERDOSE [None]
